FAERS Safety Report 24384376 (Version 1)
Quarter: 2024Q4

REPORT INFORMATION
  Report Type: Spontaneous
  Country: BG (occurrence: BG)
  Receive Date: 20241001
  Receipt Date: 20241001
  Transmission Date: 20250115
  Serious: Yes (Hospitalization)
  Sender: BRISTOL MYERS SQUIBB
  Company Number: BG-BRISTOL-MYERS SQUIBB COMPANY-2024-153722

PATIENT
  Age: 71 Year
  Sex: Male

DRUGS (4)
  1. OPDIVO [Suspect]
     Active Substance: NIVOLUMAB
     Indication: Renal cell carcinoma
     Dates: start: 20240221
  2. OPDIVO [Suspect]
     Active Substance: NIVOLUMAB
     Dates: start: 20240424
  3. YERVOY [Suspect]
     Active Substance: IPILIMUMAB
     Indication: Renal cell carcinoma
     Dosage: 4 COURSES EVERY 2 WEEKS
     Dates: start: 20240221
  4. YERVOY [Suspect]
     Active Substance: IPILIMUMAB
     Dosage: 4 COURSES EVERY 2 WEEKS
     Dates: start: 20240424

REACTIONS (10)
  - Diarrhoea [Unknown]
  - Pyrexia [Unknown]
  - Hypotension [Unknown]
  - Gastritis [Unknown]
  - Dry mouth [Unknown]
  - Blood thyroid stimulating hormone increased [Unknown]
  - Sinusitis [Unknown]
  - Nasal polyps [Unknown]
  - Frequent bowel movements [Unknown]
  - Off label use [Unknown]

NARRATIVE: CASE EVENT DATE: 20240517
